FAERS Safety Report 15664911 (Version 2)
Quarter: 2019Q3

REPORT INFORMATION
  Report Type: Report from Study
  Country: US (occurrence: US)
  Receive Date: 20181128
  Receipt Date: 20190917
  Transmission Date: 20191004
  Serious: Yes (Other)
  Sender: FDA-Public Use
  Company Number: US-PFIZER INC-2018484291

PATIENT
  Sex: Female

DRUGS (1)
  1. FILGRASTIM [Suspect]
     Active Substance: FILGRASTIM
     Indication: GLYCOGEN STORAGE DISEASE TYPE I
     Dosage: UNK, (1-2MCG/KG/DAY)

REACTIONS (1)
  - Abortion spontaneous [Unknown]
